FAERS Safety Report 7025219-5 (Version None)
Quarter: 2010Q4

REPORT INFORMATION
  Report Type: 
  Country: None (occurrence: None)
  Receive Date: 20101001
  Receipt Date: 20100923
  Transmission Date: 20110411
  Serious: Yes (Hospitalization)
  Sender: FDA-Public Use
  Company Number: US-PURDUE-USA_2009_0037542

PATIENT
  Sex: Male
  Weight: 84 kg

DRUGS (15)
  1. OXYCONTIN [Suspect]
     Indication: PRODUCT USED FOR UNKNOWN INDICATION
     Dosage: 10 MG, BID
     Route: 048
     Dates: start: 20080620
  2. OXYCODONE HCL [Suspect]
     Indication: PRODUCT USED FOR UNKNOWN INDICATION
     Dosage: 5 MG, SEE TEXT
     Route: 048
     Dates: start: 20080620
  3. PLACEBO [Suspect]
     Indication: PANCREATIC CARCINOMA METASTATIC
     Dates: start: 20080620, end: 20080811
  4. GEMCITABINE [Suspect]
     Indication: PANCREATIC CARCINOMA METASTATIC
     Dosage: 2080 MG, SEE TEXT
     Route: 042
     Dates: start: 20080620, end: 20080801
  5. PANCREASE                          /00620701/ [Concomitant]
     Dates: start: 20080612
  6. RITALIN [Concomitant]
     Dates: start: 20080701
  7. LABETALOL HCL [Concomitant]
     Dates: start: 20080701
  8. LEXAPRO [Concomitant]
     Dates: start: 20080701
  9. LOVENOX [Concomitant]
     Dates: start: 20080622
  10. MUCINEX [Concomitant]
     Dates: start: 20080703
  11. AMBIEN [Concomitant]
     Dates: start: 20080612
  12. TYLENOL (CAPLET) [Concomitant]
     Dates: start: 20080612
  13. DILAUDID [Concomitant]
     Dates: start: 20080612
  14. COMPAZINE [Concomitant]
     Dates: start: 20080701
  15. ZOFRAN [Concomitant]
     Dosage: UNK, UNK
     Dates: start: 20080701

REACTIONS (3)
  - ALVEOLITIS ALLERGIC [None]
  - MENTAL STATUS CHANGES [None]
  - PYREXIA [None]
